FAERS Safety Report 13983575 (Version 3)
Quarter: 2017Q4

REPORT INFORMATION
  Report Type: Report from Study
  Country: US (occurrence: US)
  Receive Date: 20170918
  Receipt Date: 20171010
  Transmission Date: 20180321
  Serious: Yes (Hospitalization, Other)
  Sender: FDA-Public Use
  Company Number: US-GILEAD-2017-0293733

PATIENT
  Age: 78 Year
  Sex: Female

DRUGS (12)
  1. ALBUTEROL                          /00139501/ [Concomitant]
     Active Substance: ALBUTEROL
  2. VITAMIN D                          /00107901/ [Concomitant]
     Active Substance: ERGOCALCIFEROL
  3. HYDROXYZINE [Concomitant]
     Active Substance: HYDROXYZINE HYDROCHLORIDE
  4. LORAZEPAM. [Concomitant]
     Active Substance: LORAZEPAM
  5. OMEPRAZOLE. [Concomitant]
     Active Substance: OMEPRAZOLE
  6. OXYCODONE [Concomitant]
     Active Substance: OXYCODONE
  7. ADCIRCA [Concomitant]
     Active Substance: TADALAFIL
  8. COREG [Concomitant]
     Active Substance: CARVEDILOL
  9. XARELTO [Concomitant]
     Active Substance: RIVAROXABAN
  10. GABAPENTIN. [Concomitant]
     Active Substance: GABAPENTIN
  11. SINGULAIR [Concomitant]
     Active Substance: MONTELUKAST SODIUM
  12. AMBRISENTAN [Suspect]
     Active Substance: AMBRISENTAN
     Indication: PULMONARY ARTERIAL HYPERTENSION
     Dosage: 5 MG, QD
     Route: 065
     Dates: start: 20161104

REACTIONS (2)
  - Life support [Recovering/Resolving]
  - Dyspnoea [Recovering/Resolving]
